FAERS Safety Report 17004424 (Version 1)
Quarter: 2019Q4

REPORT INFORMATION
  Report Type: Spontaneous
  Country: PL (occurrence: PL)
  Receive Date: 20191107
  Receipt Date: 20191107
  Transmission Date: 20200122
  Serious: Yes (Hospitalization)
  Sender: FDA-Public Use
  Company Number: PL-ROCHE-2454796

PATIENT
  Age: 67 Year
  Sex: Female

DRUGS (1)
  1. RITUXIMAB. [Suspect]
     Active Substance: RITUXIMAB
     Indication: PRODUCT USED FOR UNKNOWN INDICATION
     Dosage: 2 X 1 G, Q2W
     Route: 041

REACTIONS (4)
  - Skin lesion [Recovering/Resolving]
  - Rash pustular [Recovering/Resolving]
  - Neoplasm [Recovering/Resolving]
  - Pemphigus [Recovering/Resolving]
